FAERS Safety Report 13679370 (Version 5)
Quarter: 2017Q3

REPORT INFORMATION
  Report Type: Report from Study
  Country: US (occurrence: US)
  Receive Date: 20170622
  Receipt Date: 20170719
  Transmission Date: 20171127
  Serious: No
  Sender: FDA-Public Use
  Company Number: US-VIFOR (INTERNATIONAL) INC.-VIT-2017-06645

PATIENT
  Age: 57 Year
  Sex: Female
  Weight: 58.57 kg

DRUGS (20)
  1. METOPROLOL. [Concomitant]
     Active Substance: METOPROLOL
  2. COLECALCIFEROL [Concomitant]
     Active Substance: CHOLECALCIFEROL
  3. BABY ASPIRIN [Concomitant]
     Active Substance: ASPIRIN
     Indication: HYPERTENSION
  4. FLUNISOLIDE. [Concomitant]
     Active Substance: FLUNISOLIDE
  5. VELTASSA [Suspect]
     Active Substance: PATIROMER
     Dates: start: 201706
  6. SODIUM BICARBONATE. [Concomitant]
     Active Substance: SODIUM BICARBONATE
  7. FISH OIL [Concomitant]
     Active Substance: FISH OIL
  8. VELTASSA [Suspect]
     Active Substance: PATIROMER
     Dates: start: 20170614
  9. MAGNESIUM [Concomitant]
     Active Substance: MAGNESIUM
  10. MAGNESIUM [Concomitant]
     Active Substance: MAGNESIUM
  11. OMEGA 3 [Concomitant]
     Active Substance: OMEGA-3 FATTY ACIDS
  12. ACETYLSALICYLIC ACID [Concomitant]
     Active Substance: ASPIRIN
  13. VELTASSA [Suspect]
     Active Substance: PATIROMER
     Indication: NEPHROPATHY
     Route: 048
     Dates: start: 20161108
  14. VELTASSA [Suspect]
     Active Substance: PATIROMER
     Indication: HYPERKALAEMIA
     Route: 048
     Dates: start: 20170208
  15. VALTREX [Concomitant]
     Active Substance: VALACYCLOVIR HYDROCHLORIDE
     Indication: ORAL HERPES
  16. VELTASSA [Suspect]
     Active Substance: PATIROMER
     Indication: BLOOD POTASSIUM INCREASED
     Dates: start: 20170610
  17. VELTASSA [Suspect]
     Active Substance: PATIROMER
     Route: 048
     Dates: start: 20170622
  18. LOSARTAN. [Concomitant]
     Active Substance: LOSARTAN
  19. MUCINEX [Concomitant]
     Active Substance: GUAIFENESIN
  20. LOSARTAN POTASSIUM. [Concomitant]
     Active Substance: LOSARTAN POTASSIUM

REACTIONS (17)
  - Eye discharge [Unknown]
  - Vision blurred [Not Recovered/Not Resolved]
  - Hordeolum [Recovering/Resolving]
  - Off label use [Unknown]
  - Headache [Not Recovered/Not Resolved]
  - Eye allergy [Unknown]
  - Constipation [Not Recovered/Not Resolved]
  - Eye injury [Unknown]
  - Eye pruritus [Unknown]
  - Heart rate increased [Unknown]
  - Dry mouth [Not Recovered/Not Resolved]
  - Eye irritation [Unknown]
  - Nausea [Recovering/Resolving]
  - Diarrhoea [Not Recovered/Not Resolved]
  - Dizziness [Recovering/Resolving]
  - Photophobia [Not Recovered/Not Resolved]
  - Visual impairment [Not Recovered/Not Resolved]

NARRATIVE: CASE EVENT DATE: 2017
